FAERS Safety Report 4623113-8 (Version None)
Quarter: 2005Q1

REPORT INFORMATION
  Report Type: 
  Country: None (occurrence: None)
  Receive Date: 20050330
  Receipt Date: 20050318
  Transmission Date: 20050727
  Serious: Yes (Hospitalization)
  Sender: FDA-Public Use
  Company Number: DK-SANOFI-SYNTHELABO-F01200500429

PATIENT
  Sex: Female

DRUGS (11)
  1. OXALIPLATIN [Suspect]
     Indication: BILE DUCT CANCER
     Route: 042
     Dates: start: 20041203, end: 20041203
  2. GEMCITABINE [Suspect]
     Route: 042
     Dates: start: 20041203, end: 20041203
  3. CAPECITABINE [Suspect]
     Dosage: 1250 MG/M2 FROM D1 TO 7 THEN FROM D15 TO 24 Q4W
     Route: 048
     Dates: end: 20041203
  4. TRIATEC [Concomitant]
     Dosage: UNK
     Route: 065
  5. IRON SUPPLEMENT NOS [Concomitant]
     Dosage: UNK
     Route: 065
  6. SPIRON [Concomitant]
     Dosage: UNK
     Route: 065
  7. PAMOL [Concomitant]
     Dosage: UNK
     Route: 065
  8. LACTULOSE [Concomitant]
     Dosage: UNK
     Route: 065
  9. BUCLIZINE [Concomitant]
     Dosage: UNK
     Route: 065
  10. DOLOL [Concomitant]
     Dosage: UNK
     Route: 065
  11. SERENASE [Concomitant]
     Dosage: UNK
     Route: 065

REACTIONS (6)
  - BLOOD GLUCOSE INCREASED [None]
  - CONFUSIONAL STATE [None]
  - INFECTION [None]
  - LIVER FUNCTION TEST ABNORMAL [None]
  - MEMORY IMPAIRMENT [None]
  - PYREXIA [None]
